FAERS Safety Report 4295257-4 (Version None)
Quarter: 2004Q1

REPORT INFORMATION
  Report Type: 
  Country: None (occurrence: None)
  Receive Date: 20040216
  Receipt Date: 20030502
  Transmission Date: 20041129
  Serious: No
  Sender: FDA-Public Use
  Company Number: US-GLAXOSMITHKLINE-A0406993A

PATIENT
  Age: 60 Year
  Sex: Male

DRUGS (2)
  1. LAMICTAL [Suspect]
     Dosage: 100MG PER DAY
     Route: 048
     Dates: start: 20030301
  2. REMERON [Concomitant]
     Dosage: 15MG UNKNOWN
     Route: 065

REACTIONS (9)
  - AMNESIA [None]
  - BODY TEMPERATURE INCREASED [None]
  - DISORIENTATION [None]
  - DYSARTHRIA [None]
  - FURUNCLE [None]
  - HEAT RASH [None]
  - POLLAKIURIA [None]
  - SWOLLEN TONGUE [None]
  - URINARY TRACT INFECTION [None]
